FAERS Safety Report 5725432-0 (Version None)
Quarter: 2008Q2

REPORT INFORMATION
  Report Type: 
  Country: None (occurrence: None)
  Receive Date: 20080501
  Receipt Date: 20080425
  Transmission Date: 20081010
  Serious: Yes (Hospitalization)
  Sender: FDA-Public Use
  Company Number: US-ASTRAZENECA-2008UW08435

PATIENT
  Age: 73 Year
  Sex: Male
  Weight: 78.2 kg

DRUGS (4)
  1. ZESTRIL [Suspect]
     Indication: HYPERTENSION
     Route: 048
     Dates: start: 20001216
  2. VASOTEC [Concomitant]
     Indication: HYPERTENSION
     Route: 048
     Dates: start: 19920101
  3. VASOTEC [Concomitant]
     Route: 048
     Dates: start: 19920101
  4. ASPIRIN [Concomitant]
     Dates: start: 20000101

REACTIONS (1)
  - BLOOD PRESSURE INCREASED [None]
